FAERS Safety Report 8861974 (Version 2)
Quarter: 2012Q4

REPORT INFORMATION
  Report Type: 
  Country: US (occurrence: US)
  Receive Date: 20121025
  Receipt Date: 20121212
  Transmission Date: 20130627
  Serious: Yes (Other)
  Sender: FDA-Public Use
  Company Number: US-PFIZER INC-2012205437

PATIENT
  Age: 50 Year
  Sex: Male
  Weight: 109 kg

DRUGS (10)
  1. NARDIL [Suspect]
     Indication: AGORAPHOBIA
     Dosage: 15 mg, 2x/day
     Route: 048
     Dates: start: 20120922
  2. NARDIL [Suspect]
     Indication: ANXIETY
     Dosage: 30 mg in morning and 15 mg at night
     Route: 048
     Dates: start: 20121013
  3. NARDIL [Suspect]
     Indication: PANIC ATTACK
  4. NARDIL [Suspect]
     Indication: PANIC DISORDER WITH AGORAPHOBIA
  5. NIFEDIPINE [Suspect]
     Indication: HEADACHE
     Dosage: 10 mg, as needed
     Route: 048
     Dates: start: 20120822
  6. NIFEDIPINE [Suspect]
     Indication: TYRAMINE REACTION
  7. PROZAC [Suspect]
     Dosage: UNK
  8. KLONOPIN [Concomitant]
     Dosage: 6 mg, 3x/day
  9. CLONAZEPAM [Concomitant]
     Indication: ANXIETY
     Dosage: 2 mg, 3x/day
  10. ALLEGRA [Concomitant]
     Indication: TOOTH PAIN
     Dosage: UNK

REACTIONS (5)
  - Blood pressure diastolic increased [Recovered/Resolved]
  - Depersonalisation [Unknown]
  - Drug ineffective [Unknown]
  - Panic disorder [Unknown]
  - Headache [Recovered/Resolved]
